FAERS Safety Report 12866583 (Version 1)
Quarter: 2016Q4

REPORT INFORMATION
  Report Type: Spontaneous
  Country: None (occurrence: GB)
  Receive Date: 20161020
  Receipt Date: 20161020
  Transmission Date: 20170207
  Serious: Yes (Other)
  Sender: FDA-Public Use
  Company Number: GB-MEDAC PHARMA, INC.-1058567

PATIENT
  Age: 59 Year
  Sex: Female

DRUGS (2)
  1. SIMPONI [Suspect]
     Active Substance: GOLIMUMAB
  2. METHOTREXATE SODIUM. [Suspect]
     Active Substance: METHOTREXATE SODIUM

REACTIONS (10)
  - Sputum discoloured [Unknown]
  - Intervertebral disc protrusion [Unknown]
  - Blood pressure fluctuation [Unknown]
  - Spinal pain [Unknown]
  - Influenza [Unknown]
  - Nerve injury [Unknown]
  - Productive cough [Unknown]
  - Insomnia [Unknown]
  - Lower respiratory tract infection [Unknown]
  - Peripheral swelling [Unknown]
